FAERS Safety Report 6655258-5 (Version None)
Quarter: 2010Q1

REPORT INFORMATION
  Report Type: 
  Country: None (occurrence: None)
  Receive Date: 20100329
  Receipt Date: 20100317
  Transmission Date: 20100710
  Serious: Yes (Other)
  Sender: FDA-Public Use
  Company Number: JP-GENZYME-THYM-1001420

PATIENT
  Sex: Male
  Weight: 52 kg

DRUGS (7)
  1. THYMOGLOBULIN [Suspect]
     Indication: BONE MARROW CONDITIONING REGIMEN
     Dosage: 2.5 MG/KG, QD
     Route: 042
     Dates: start: 20100129, end: 20100129
  2. HYDROXYZINE [Concomitant]
     Indication: PREMEDICATION
     Dosage: 25 MG, UNK
     Route: 042
     Dates: start: 20100129, end: 20100129
  3. HYDROCORTISONE SODIUM SUCCINATE [Concomitant]
     Indication: PREMEDICATION
     Dosage: 100 MG, UNK
     Route: 042
     Dates: start: 20100129, end: 20100129
  4. ZOSYN [Concomitant]
     Indication: LIVER ABSCESS
     Dosage: 4.5 G, QID
     Route: 042
     Dates: start: 20100112, end: 20100221
  5. URSODEOXYCHOLIC ACID [Concomitant]
     Indication: PROPHYLAXIS
     Dosage: 200 MG/ML, TID
     Route: 048
     Dates: start: 20100129
  6. CIPROFLOXACIN HYDROCHLORIDE [Concomitant]
     Indication: PROPHYLAXIS
     Dosage: 200 MG, TID
     Dates: start: 20100129, end: 20100212
  7. ACYCLOVIR SODIUM [Concomitant]
     Indication: PROPHYLAXIS
     Dosage: 200 MG, UNK
     Route: 048
     Dates: start: 20100129, end: 20100214

REACTIONS (3)
  - DISSEMINATED INTRAVASCULAR COAGULATION [None]
  - LIVER DISORDER [None]
  - PYREXIA [None]
